FAERS Safety Report 19774140 (Version 1)
Quarter: 2021Q3

REPORT INFORMATION
  Report Type: Spontaneous
  Country: NL (occurrence: NL)
  Receive Date: 20210901
  Receipt Date: 20210901
  Transmission Date: 20211014
  Serious: Yes (Other)
  Sender: FDA-Public Use
  Company Number: NL-TEVA-2021-NL-1946285

PATIENT
  Age: 71 Year
  Sex: Female
  Weight: 97 kg

DRUGS (2)
  1. IRBESARTAN TABLET 150MG / IRBESARTAN TEVA TABLET FILMOMHULD 150MG [Suspect]
     Active Substance: IRBESARTAN
     Indication: HYPERTENSION
     Dosage: THERAPY END DATE: ASKU
     Route: 065
     Dates: start: 2017
  2. COLECALCIFEROL / BRAND NAME NOT SPECIFIED [Concomitant]
     Active Substance: CHOLECALCIFEROL
     Dosage: WOMAN 1X A WEEK AND MAN EVERY DAY 1, 1 DF, THERAPY START AND END DATE: ASKU

REACTIONS (1)
  - Breast cancer [Unknown]

NARRATIVE: CASE EVENT DATE: 20210225
